FAERS Safety Report 11363204 (Version 3)
Quarter: 2015Q4

REPORT INFORMATION
  Report Type: Spontaneous
  Country: US (occurrence: US)
  Receive Date: 20150811
  Receipt Date: 20151215
  Transmission Date: 20160304
  Serious: Yes (Death, Hospitalization)
  Sender: FDA-Public Use
  Company Number: US-ROCHE-1619334

PATIENT
  Age: 67 Year
  Sex: Female
  Weight: 72.64 kg

DRUGS (1)
  1. ESBRIET [Suspect]
     Active Substance: PIRFENIDONE
     Indication: IDIOPATHIC PULMONARY FIBROSIS
     Dosage: 3 CAPSULES
     Route: 048
     Dates: start: 20150415

REACTIONS (5)
  - Dyspnoea [Unknown]
  - Alopecia [Unknown]
  - Bronchitis [Unknown]
  - Cough [Unknown]
  - Death [Fatal]

NARRATIVE: CASE EVENT DATE: 20151023
